FAERS Safety Report 8396116-8 (Version None)
Quarter: 2012Q1

REPORT INFORMATION
  Report Type: 
  Country: None (occurrence: None)
  Receive Date: 20120323
  Receipt Date: 20111226
  Transmission Date: 20120608
  Serious: Yes (Other)
  Sender: FDA-Public Use
  Company Number: 163-21880-11123491

PATIENT
  Sex: Female

DRUGS (2)
  1. REVLIMID [Suspect]
     Indication: MULTIPLE MYELOMA
     Dosage: 15 MG, 1 IN 1 D, PO, 25 MG, 1 IN 1 D, PO
     Route: 048
     Dates: start: 20090701
  2. REVLIMID [Suspect]
     Indication: MULTIPLE MYELOMA
     Dosage: 15 MG, 1 IN 1 D, PO, 25 MG, 1 IN 1 D, PO
     Route: 048
     Dates: start: 20090601

REACTIONS (2)
  - ENCEPHALITIC INFECTION [None]
  - EAR INFECTION [None]
